FAERS Safety Report 25261898 (Version 1)
Quarter: 2025Q2

REPORT INFORMATION
  Report Type: Spontaneous
  Country: GB (occurrence: GB)
  Receive Date: 20250502
  Receipt Date: 20250502
  Transmission Date: 20250716
  Serious: Yes (Other)
  Sender: HIKMA PHARMACEUTICALS USA INC.
  Company Number: None

PATIENT
  Age: 35 Year
  Sex: Male
  Weight: 78 kg

DRUGS (1)
  1. CIPROFLOXACIN [Suspect]
     Active Substance: CIPROFLOXACIN
     Indication: Ear infection
     Route: 065

REACTIONS (9)
  - Ocular hyperaemia [Unknown]
  - Decreased appetite [Unknown]
  - Fatigue [Unknown]
  - Myalgia [Not Recovered/Not Resolved]
  - Gait disturbance [Unknown]
  - Insomnia [Unknown]
  - Abdominal pain upper [Unknown]
  - Toxicity to various agents [Unknown]
  - Medication error [Unknown]
